FAERS Safety Report 18527932 (Version 1)
Quarter: 2020Q4

REPORT INFORMATION
  Report Type: Spontaneous
  Country: US (occurrence: US)
  Receive Date: 20201120
  Receipt Date: 20201120
  Transmission Date: 20210114
  Serious: No
  Sender: FDA-Public Use
  Company Number: US-MYLANLABS-2020M1094615

PATIENT
  Sex: Female

DRUGS (1)
  1. FENTANYL. [Suspect]
     Active Substance: FENTANYL
     Indication: PAIN
     Dosage: EVERY 72 HOURS
     Route: 062

REACTIONS (4)
  - Burning sensation [Unknown]
  - Product use issue [Unknown]
  - Feeling cold [Unknown]
  - Drug ineffective [Unknown]
